FAERS Safety Report 5302838-5 (Version None)
Quarter: 2007Q2

REPORT INFORMATION
  Report Type: 
  Country: None (occurrence: None)
  Receive Date: 20070417
  Receipt Date: 20070417
  Transmission Date: 20071010
  Serious: No
  Sender: FDA-Public Use
  Company Number: None

PATIENT
  Sex: Female
  Weight: 67.1324 kg

DRUGS (2)
  1. SERTRALINE [Suspect]
     Indication: ANXIETY
     Dosage: 100MG 1 TABLET DAILY PO
     Route: 048
     Dates: start: 20061207, end: 20070226
  2. SERTRALINE [Suspect]
     Indication: DEPRESSION
     Dosage: 100MG 1 TABLET DAILY PO
     Route: 048
     Dates: start: 20061207, end: 20070226

REACTIONS (3)
  - DRUG EFFECT DECREASED [None]
  - MENTAL DISORDER [None]
  - THERAPEUTIC RESPONSE UNEXPECTED WITH DRUG SUBSTITUTION [None]
